FAERS Safety Report 20825834 (Version 6)
Quarter: 2022Q2

REPORT INFORMATION
  Report Type: Report from Study
  Country: JP (occurrence: JP)
  Receive Date: 20220513
  Receipt Date: 20220617
  Transmission Date: 20220721
  Serious: Yes (Hospitalization, Other)
  Sender: FDA-Public Use
  Company Number: JP-ONO-2022JP006714

PATIENT
  Age: 48 Year
  Sex: Male
  Weight: 106.4 kg

DRUGS (30)
  1. NIVOLUMAB [Suspect]
     Active Substance: NIVOLUMAB
     Indication: Pancreatic carcinoma
     Dosage: 480 MILLIGRAM, Q4WK
     Route: 041
     Dates: start: 20210819, end: 20220427
  2. GEMCITABINE [Suspect]
     Active Substance: GEMCITABINE
     Indication: Pancreatic carcinoma
     Dosage: 1000 MG/M2
     Route: 065
     Dates: start: 20210819
  3. GEMCITABINE [Suspect]
     Active Substance: GEMCITABINE
     Dosage: 1000 MG/M2
     Route: 065
     Dates: start: 20220316
  4. TS-1 [Concomitant]
     Active Substance: GIMERACIL\OTERACIL\TEGAFUR
     Indication: Pancreatic carcinoma
     Dosage: UNK
     Route: 065
     Dates: start: 20210622, end: 20210802
  5. TS-1 [Concomitant]
     Active Substance: GIMERACIL\OTERACIL\TEGAFUR
  6. TS-1 [Concomitant]
     Active Substance: GIMERACIL\OTERACIL\TEGAFUR
  7. TS-1 [Concomitant]
     Active Substance: GIMERACIL\OTERACIL\TEGAFUR
  8. TS-1 [Concomitant]
     Active Substance: GIMERACIL\OTERACIL\TEGAFUR
  9. TS-1 [Concomitant]
     Active Substance: GIMERACIL\OTERACIL\TEGAFUR
  10. SYMBICORT [Concomitant]
     Active Substance: BUDESONIDE\FORMOTEROL FUMARATE DIHYDRATE
     Indication: Asthma
     Dosage: 2 DF, PRN
     Route: 055
     Dates: start: 2018
  11. SYMBICORT [Concomitant]
     Active Substance: BUDESONIDE\FORMOTEROL FUMARATE DIHYDRATE
  12. SYMBICORT [Concomitant]
     Active Substance: BUDESONIDE\FORMOTEROL FUMARATE DIHYDRATE
  13. SYMBICORT [Concomitant]
     Active Substance: BUDESONIDE\FORMOTEROL FUMARATE DIHYDRATE
  14. SYMBICORT [Concomitant]
     Active Substance: BUDESONIDE\FORMOTEROL FUMARATE DIHYDRATE
  15. SYMBICORT [Concomitant]
     Active Substance: BUDESONIDE\FORMOTEROL FUMARATE DIHYDRATE
  16. CALONAL [Concomitant]
     Active Substance: ACETAMINOPHEN
     Indication: Cancer pain
     Dosage: 600 MG, PRN
     Route: 048
     Dates: start: 20210622
  17. CALONAL [Concomitant]
     Active Substance: ACETAMINOPHEN
  18. CALONAL [Concomitant]
     Active Substance: ACETAMINOPHEN
  19. CALONAL [Concomitant]
     Active Substance: ACETAMINOPHEN
  20. CALONAL [Concomitant]
     Active Substance: ACETAMINOPHEN
  21. CALONAL [Concomitant]
     Active Substance: ACETAMINOPHEN
  22. DEXAMETHASONE SODIUM PHOSPHATE [Concomitant]
     Active Substance: DEXAMETHASONE SODIUM PHOSPHATE
     Indication: Chemotherapy side effect prophylaxis
     Dosage: 6.6 MG, DURING CHEMOTHERAPY
     Route: 042
     Dates: start: 20210819
  23. DEXAMETHASONE SODIUM PHOSPHATE [Concomitant]
     Active Substance: DEXAMETHASONE SODIUM PHOSPHATE
  24. DEXAMETHASONE SODIUM PHOSPHATE [Concomitant]
     Active Substance: DEXAMETHASONE SODIUM PHOSPHATE
  25. DEXAMETHASONE SODIUM PHOSPHATE [Concomitant]
     Active Substance: DEXAMETHASONE SODIUM PHOSPHATE
  26. DEXAMETHASONE SODIUM PHOSPHATE [Concomitant]
     Active Substance: DEXAMETHASONE SODIUM PHOSPHATE
  27. DEXAMETHASONE SODIUM PHOSPHATE [Concomitant]
     Active Substance: DEXAMETHASONE SODIUM PHOSPHATE
  28. LOXOPROFEN [Concomitant]
     Active Substance: LOXOPROFEN
     Indication: Cancer pain
     Dosage: 60 MG/TIME, PRN
     Route: 048
     Dates: start: 20220317
  29. URSODIOL [Concomitant]
     Active Substance: URSODIOL
     Indication: Alanine aminotransferase increased
     Dosage: 300 MG, Q8H
     Route: 048
     Dates: start: 20220323
  30. URSODIOL [Concomitant]
     Active Substance: URSODIOL
     Indication: Blood alkaline phosphatase increased

REACTIONS (2)
  - Duodenal ulcer [Recovering/Resolving]
  - Cholangitis [Recovered/Resolved]

NARRATIVE: CASE EVENT DATE: 20220307
